FAERS Safety Report 7228494-7 (Version None)
Quarter: 2011Q1

REPORT INFORMATION
  Report Type: 
  Country: None (occurrence: None)
  Receive Date: 20110116
  Receipt Date: 20110105
  Transmission Date: 20110831
  Serious: Yes (Hospitalization, Other)
  Sender: FDA-Public Use
  Company Number: PHHY2010US88622

PATIENT
  Age: 33 Year
  Sex: Male
  Weight: 70.295 kg

DRUGS (1)
  1. TOBI [Suspect]
     Indication: NEOPLASM MALIGNANT
     Dosage: 300 MG, BID CONTINUOUSLY
     Dates: start: 20101123

REACTIONS (3)
  - LUNG INFECTION [None]
  - BONE SARCOMA [None]
  - PNEUMONIA ASPIRATION [None]
